FAERS Safety Report 24311822 (Version 1)
Quarter: 2024Q3

REPORT INFORMATION
  Report Type: Spontaneous
  Country: US (occurrence: US)
  Receive Date: 20240912
  Receipt Date: 20240912
  Transmission Date: 20241016
  Serious: No
  Sender: SANOFI AVENTIS
  Company Number: US-SA-2024SA263444

PATIENT
  Sex: Female
  Weight: 88.64 kg

DRUGS (4)
  1. DUPIXENT [Suspect]
     Active Substance: DUPILUMAB
     Indication: Dermatitis atopic
     Dosage: 300 MG, QOW
  2. POTASSIUM [Concomitant]
     Active Substance: POTASSIUM
  3. IBUPROFEN [Concomitant]
     Active Substance: IBUPROFEN
  4. GLUCOSAMINE SULFATE [Concomitant]
     Active Substance: GLUCOSAMINE SULFATE

REACTIONS (1)
  - Fungal infection [Unknown]
